FAERS Safety Report 9013432 (Version 1)
Quarter: 2013Q1

REPORT INFORMATION
  Report Type: Spontaneous
  Country: US (occurrence: US)
  Receive Date: 20130114
  Receipt Date: 20130114
  Transmission Date: 20140127
  Serious: Yes (Death)
  Sender: FDA-Public Use
  Company Number: US-MERCK-1301USA004130

PATIENT
  Age: 55 Year
  Sex: Female

DRUGS (13)
  1. SINGULAIR [Suspect]
  2. LISINOPRIL [Suspect]
  3. GABAPENTIN [Suspect]
  4. HYDROCODONE BITARTRATE [Suspect]
  5. OXYCODONE HYDROCHLORIDE [Suspect]
  6. ALPRAZOLAM [Suspect]
  7. CYCLOBENZAPRINE HYDROCHLORIDE [Suspect]
  8. COCAINE [Suspect]
  9. MORPHINE [Suspect]
  10. NAPROXEN [Suspect]
  11. PRAVASTATIN [Suspect]
  12. EZETIMIBE (+) SIMVASTATIN [Suspect]
  13. CIMETIDINE [Suspect]

REACTIONS (1)
  - Death [Fatal]
